FAERS Safety Report 6186526-1 (Version None)
Quarter: 2009Q2

REPORT INFORMATION
  Report Type: 
  Country: None (occurrence: None)
  Receive Date: 20090507
  Receipt Date: 20090507
  Transmission Date: 20091009
  Serious: No
  Sender: FDA-Public Use
  Company Number: None

PATIENT
  Age: 50 Year
  Sex: Female
  Weight: 47.6277 kg

DRUGS (1)
  1. VALTREX [Suspect]
     Indication: FACIAL PALSY
     Dosage: 3 TIMES PER DAY PO
     Route: 048
     Dates: start: 20090501, end: 20090503

REACTIONS (5)
  - DYSSTASIA [None]
  - HEADACHE [None]
  - NO THERAPEUTIC RESPONSE [None]
  - PALPITATIONS [None]
  - VERTIGO [None]
